FAERS Safety Report 20923525 (Version 1)
Quarter: 2022Q2

REPORT INFORMATION
  Report Type: Other
  Country: KR (occurrence: None)
  Receive Date: 20220607
  Receipt Date: 20220607
  Transmission Date: 20220721
  Serious: Yes (Hospitalization)
  Sender: FDA-Public Use
  Company Number: KR-ROCHE-3104520

PATIENT
  Age: 71 Year
  Sex: Male
  Weight: 51.3 kg

DRUGS (12)
  1. ATEZOLIZUMAB [Suspect]
     Active Substance: ATEZOLIZUMAB
     Indication: Small cell lung cancer extensive stage
     Route: 041
     Dates: start: 20220222, end: 20220222
  2. ATEZOLIZUMAB [Suspect]
     Active Substance: ATEZOLIZUMAB
     Route: 041
     Dates: start: 20220313
  3. ATEZOLIZUMAB [Suspect]
     Active Substance: ATEZOLIZUMAB
     Route: 041
     Dates: start: 20220427, end: 20220427
  4. ATEZOLIZUMAB [Suspect]
     Active Substance: ATEZOLIZUMAB
     Route: 041
     Dates: start: 20220518, end: 20220518
  5. ATEZOLIZUMAB [Suspect]
     Active Substance: ATEZOLIZUMAB
     Route: 041
     Dates: start: 20220316, end: 20220316
  6. CARBOPLATIN [Suspect]
     Active Substance: CARBOPLATIN
     Indication: Small cell lung cancer extensive stage
     Route: 042
     Dates: start: 20220222
  7. CARBOPLATIN [Suspect]
     Active Substance: CARBOPLATIN
     Route: 042
     Dates: start: 20220316
  8. CARBOPLATIN [Suspect]
     Active Substance: CARBOPLATIN
     Route: 042
     Dates: start: 20220427, end: 20220427
  9. ETOPOSIDE [Suspect]
     Active Substance: ETOPOSIDE
     Indication: Small cell lung cancer extensive stage
     Dosage: SUBSEQUENT DOSES OF 100MG ON 23/FEB/2022, 24/FEB/2022,16/MAR/2022, 17/MAR/2022, 18/MAR/2022,06/APR/2
     Route: 042
     Dates: start: 20220222, end: 20220222
  10. HERBAL NOS [Concomitant]
     Active Substance: HERBALS
     Route: 065
  11. HOMEOPATHIC MEDICATION (UNK INGREDIENTS) [Concomitant]
     Route: 065
  12. DIETARY SUPPLEMENT [Concomitant]
     Active Substance: DIETARY SUPPLEMENT
     Route: 065

REACTIONS (5)
  - Diabetic neuropathy [Not Recovered/Not Resolved]
  - COVID-19 [Recovered/Resolved]
  - Diabetes mellitus inadequate control [Recovered/Resolved]
  - Asthenia [Recovering/Resolving]
  - Adrenal insufficiency [Recovering/Resolving]

NARRATIVE: CASE EVENT DATE: 20220426
